FAERS Safety Report 5908593-X (Version None)
Quarter: 2008Q3

REPORT INFORMATION
  Report Type: 
  Country: None (occurrence: None)
  Receive Date: 20080930
  Receipt Date: 20080915
  Transmission Date: 20090109
  Serious: Yes (Hospitalization, Other)
  Sender: FDA-Public Use
  Company Number: SP1200800471

PATIENT
  Age: 67 Year
  Sex: Female

DRUGS (9)
  1. AMITIZA [Suspect]
     Indication: CONSTIPATION
     Dosage: 24 MCG, BID, ORAL; 24 MCG, BID, ORAL
     Route: 048
     Dates: start: 20080821, end: 20080821
  2. AMITIZA [Suspect]
     Indication: CONSTIPATION
     Dosage: 24 MCG, BID, ORAL; 24 MCG, BID, ORAL
     Route: 048
     Dates: start: 20080901, end: 20080901
  3. ASPIRIN [Concomitant]
  4. NEXIUM [Concomitant]
  5. PULMICORT [Concomitant]
  6. RANITIDINE [Concomitant]
  7. TEMAZEPAM [Concomitant]
  8. LIPITOR [Concomitant]
  9. PROVENTIL /00139502/ (SALBUTAMOL SULFATE) [Concomitant]

REACTIONS (9)
  - ABDOMINAL PAIN [None]
  - ATRIAL FIBRILLATION [None]
  - FACE INJURY [None]
  - FALL [None]
  - FEELING ABNORMAL [None]
  - HAEMATOMA [None]
  - LOSS OF CONSCIOUSNESS [None]
  - NAUSEA [None]
  - SYNCOPE VASOVAGAL [None]
